FAERS Safety Report 7773564-8 (Version None)
Quarter: 2011Q3

REPORT INFORMATION
  Report Type: 
  Country: None (occurrence: None)
  Receive Date: 20110923
  Receipt Date: 20110919
  Transmission Date: 20111222
  Serious: Yes (Other)
  Sender: FDA-Public Use
  Company Number: US-CEPHALON-2009029761

PATIENT
  Sex: Female

DRUGS (3)
  1. DURAGESIC-100 [Concomitant]
     Indication: PANCREATITIS CHRONIC
     Route: 062
  2. METHADONE HCL [Concomitant]
     Indication: PANCREATITIS CHRONIC
     Route: 048
  3. FENTORA [Suspect]
     Indication: PANCREATITIS CHRONIC
     Route: 002
     Dates: start: 20070501

REACTIONS (2)
  - DRUG PRESCRIBING ERROR [None]
  - DENTAL CARIES [None]
